FAERS Safety Report 17072459 (Version 4)
Quarter: 2021Q3

REPORT INFORMATION
  Report Type: Report from Study
  Country: IT (occurrence: IT)
  Receive Date: 20191125
  Receipt Date: 20210907
  Transmission Date: 20211014
  Serious: Yes (Other)
  Sender: FDA-Public Use
  Company Number: IT-MYLANLABS-2019M1113008

PATIENT
  Age: 56 Year
  Sex: Female
  Weight: 60 kg

DRUGS (25)
  1. MOVICOL [Concomitant]
     Active Substance: POLYETHYLENE GLYCOL 3350\POTASSIUM CHLORIDE\SODIUM BICARBONATE\SODIUM CHLORIDE
     Dosage: UNK, ONGOING CHECKED
     Route: 065
     Dates: start: 20191111
  2. LYRICA [Concomitant]
     Active Substance: PREGABALIN
     Dosage: UNK, ONGOING CHECKED
     Route: 065
     Dates: start: 20190610
  3. TAVOR (LORAZEPAM) [Concomitant]
     Active Substance: LORAZEPAM
     Dosage: UNK, ONGOING NOT CHECKED
     Route: 065
     Dates: start: 20190115, end: 20191102
  4. TRASTUZUMAB EMTANSINE [Suspect]
     Active Substance: ADO-TRASTUZUMAB EMTANSINE
     Dosage: 3.6 MILLIGRAM/KILOGRAM, Q3W, MOST RECENT DOSE PRIOR TO THE EVENT: 20181009
     Route: 065
     Dates: start: 20181008, end: 20191224
  5. BRUFEN                             /00109201/ [Concomitant]
     Active Substance: IBUPROFEN
     Dosage: UNK, ONGOING CHECKED
     Route: 065
     Dates: start: 20190114, end: 20191021
  6. TACHIDOL [Concomitant]
     Active Substance: ACETAMINOPHEN\CODEINE PHOSPHATE
     Dosage: UNK, ONGOING NOT CHECKED
     Route: 065
     Dates: start: 20190318, end: 20201223
  7. TRASTUZUMAB. [Suspect]
     Active Substance: TRASTUZUMAB
     Indication: BREAST CANCER
     Dosage: 6 MILLIGRAM/KILOGRAM, Q3W, EVERY 3 WEEKS
     Route: 041
     Dates: start: 20171116, end: 20180918
  8. SETOFILM [Concomitant]
     Active Substance: ONDANSETRON
     Dosage: UNK, ONGOING  CHECKED
     Route: 065
  9. TACHIPIRINA [Concomitant]
     Active Substance: ACETAMINOPHEN
     Dosage: UNK, ONGOING CHECKED
     Route: 065
     Dates: start: 20190114
  10. LANSOPRAZOLO [Concomitant]
     Active Substance: LANSOPRAZOLE
     Dosage: UNK, ONGOING CHECKED
     Route: 065
  11. VENLAFAXINA                        /01233801/ [Concomitant]
     Active Substance: VENLAFAXINE HYDROCHLORIDE
     Dosage: UNK, ONGOING  CHECKED
     Route: 065
     Dates: start: 20190610
  12. TRASTUZUMAB EMTANSINE [Suspect]
     Active Substance: ADO-TRASTUZUMAB EMTANSINE
     Indication: BREAST CANCER
     Dosage: 3.6 MILLIGRAM/KILOGRAM, Q3W, MOST RECENT DOSE PRIOR TO THE EVENT: 20181009
     Route: 042
     Dates: start: 20181008, end: 20181107
  13. DESAMETASONE [Concomitant]
     Active Substance: DEXAMETHASONE
     Dosage: UNK, ONGOING NOT CHECKED
     Route: 065
     Dates: start: 20181009, end: 20191224
  14. PERTUZUMAB. [Suspect]
     Active Substance: PERTUZUMAB
     Indication: BREAST CANCER
     Dosage: 420 MILLIGRAM, Q3W, EVERY 3 WEEKS
     Route: 042
     Dates: start: 20171116, end: 20180918
  15. PLASIL                             /00041901/ [Concomitant]
     Active Substance: METOCLOPRAMIDE
     Dosage: UNK, ONGOING CHECKED
     Route: 065
     Dates: start: 20191111
  16. BISOPROLOLO [Concomitant]
     Active Substance: BISOPROLOL FUMARATE
     Dosage: UNK, ONGOING CHECKED
     Route: 065
  17. TAXOTERE [Suspect]
     Active Substance: DOCETAXEL
     Indication: BREAST CANCER
     Dosage: 75 MILLIGRAM/SQ. METER, Q3W
     Route: 042
     Dates: start: 20171116, end: 20180305
  18. EUTIROX [Concomitant]
     Active Substance: LEVOTHYROXINE SODIUM
     Dosage: UNK, ONGOING CHECKED
     Route: 065
  19. RAMIPRIL. [Concomitant]
     Active Substance: RAMIPRIL
     Dosage: UNK, ONGOING CHECKED
     Route: 065
     Dates: start: 20200501
  20. PANTOPRAZOLO [Concomitant]
     Active Substance: PANTOPRAZOLE SODIUM
     Dosage: UNK, ONGOING NOT CHECKED
     Route: 065
     Dates: start: 20190115, end: 20191223
  21. STILNOX [Concomitant]
     Active Substance: ZOLPIDEM TARTRATE
     Dosage: UNK, ONGOING CHECKED
     Route: 065
     Dates: start: 20180327
  22. TACHIPIRINA [Concomitant]
     Active Substance: ACETAMINOPHEN
     Dosage: UNK, ONGOING = CHECKED
     Route: 065
     Dates: start: 20190104
  23. DOCETAXEL. [Suspect]
     Active Substance: DOCETAXEL
     Indication: BREAST CANCER
     Dosage: 75 MILLIGRAM/SQ. METER
     Route: 042
     Dates: start: 20171116, end: 20180306
  24. BRUFEN                             /00109201/ [Concomitant]
     Active Substance: IBUPROFEN
     Dosage: UNK, ONGOING CHECKED
     Route: 065
     Dates: start: 20190104
  25. TRIMBOW [Concomitant]
     Active Substance: BECLOMETHASONE DIPROPIONATE\FORMOTEROL FUMARATE\GLYCOPYRROLATE
     Indication: CHRONIC OBSTRUCTIVE PULMONARY DISEASE
     Dosage: UNK, ONGOING CHECKED
     Route: 065
     Dates: start: 20190319, end: 20190822

REACTIONS (3)
  - Contusion [Recovered/Resolved]
  - Epilepsy [Recovered/Resolved]
  - Headache [Recovered/Resolved]

NARRATIVE: CASE EVENT DATE: 20190530
